FAERS Safety Report 21548825 (Version 2)
Quarter: 2023Q1

REPORT INFORMATION
  Report Type: Spontaneous
  Country: US (occurrence: US)
  Receive Date: 20221103
  Receipt Date: 20230214
  Transmission Date: 20230418
  Serious: Yes (Other)
  Sender: FDA-Public Use
  Company Number: US-INTRA-CELLULAR THERAPIES, INC.-2022ICT01412

PATIENT
  Age: 59 Year
  Sex: Female

DRUGS (7)
  1. CAPLYTA [Suspect]
     Active Substance: LUMATEPERONE
     Indication: Bipolar disorder
     Dosage: 42 MG
     Dates: start: 202204
  2. PROZAC [Suspect]
     Active Substance: FLUOXETINE HYDROCHLORIDE
     Dosage: 20 MG, 2X/DAY
     Dates: end: 2022
  3. LATUDA [Suspect]
     Active Substance: LURASIDONE HYDROCHLORIDE
     Dosage: 180 MG
     Dates: end: 2022
  4. LITHIUM [Suspect]
     Active Substance: LITHIUM
     Dosage: UNK
     Dates: end: 2022
  5. CYMBALTA [Concomitant]
     Active Substance: DULOXETINE HYDROCHLORIDE
     Dosage: 90 MG
  6. PROVIGIL [Concomitant]
     Active Substance: MODAFINIL
     Dosage: 100 MG
  7. WELLBUTRIN SR [Concomitant]
     Active Substance: BUPROPION HYDROCHLORIDE
     Dosage: 150 MG

REACTIONS (6)
  - Depression [Unknown]
  - Mania [Unknown]
  - Anxiety [Unknown]
  - Drug interaction [Recovered/Resolved]
  - Performance status decreased [Unknown]
  - Malaise [Unknown]

NARRATIVE: CASE EVENT DATE: 20220101
